FAERS Safety Report 7055762-4 (Version None)
Quarter: 2010Q4

REPORT INFORMATION
  Report Type: 
  Country: None (occurrence: None)
  Receive Date: 20101021
  Receipt Date: 20101018
  Transmission Date: 20110411
  Serious: Yes (Hospitalization, Other)
  Sender: FDA-Public Use
  Company Number: SI-ROCHE-734601

PATIENT
  Sex: Female

DRUGS (6)
  1. BONIVA [Suspect]
     Indication: OSTEOPOROSIS POSTMENOPAUSAL
     Route: 048
     Dates: start: 20070101, end: 20100701
  2. CHOLECALCIFEROL [Concomitant]
  3. PERINDOPRIL [Concomitant]
     Dosage: DRUG NAME: PREXANIL/PERINDOPRIL
  4. LACIPIL [Concomitant]
     Dosage: FREQUENCY: PER DAY
  5. DETRUNORM [Concomitant]
  6. ASPIRIN [Concomitant]

REACTIONS (2)
  - HIP FRACTURE [None]
  - OSTEONECROSIS OF JAW [None]
